FAERS Safety Report 7981727 (Version 2)
Quarter: 2012Q4

REPORT INFORMATION
  Report Type: 
  Country: CA (occurrence: CA)
  Receive Date: 20110608
  Receipt Date: 20121109
  Transmission Date: 20130627
  Serious: Yes (Other)
  Sender: FDA-Public Use
  Company Number: PHMT2006CA01520

PATIENT
  Sex: Male

DRUGS (7)
  1. SANDOSTATIN LAR [Suspect]
     Indication: HEPATIC CANCER METASTATIC
     Dosage: 20 mg, UNK
     Dates: start: 20051006
  2. FERROUS GLUCONATE [Concomitant]
  3. HYDROCHLOROTHIAZIDE [Concomitant]
  4. METOCLOPRAMIDE [Concomitant]
  5. PROSCAR [Concomitant]
  6. SYNTHROID [Concomitant]
  7. MULTI-VIT [Concomitant]

REACTIONS (8)
  - Mobility decreased [Not Recovered/Not Resolved]
  - Arthropathy [Recovering/Resolving]
  - Pain [Not Recovered/Not Resolved]
  - Blood pressure increased [Unknown]
  - Hypertension [Unknown]
  - Heart rate decreased [Unknown]
  - Abdominal discomfort [Unknown]
  - Abdominal distension [Unknown]
